FAERS Safety Report 11138882 (Version 2)
Quarter: 2015Q3

REPORT INFORMATION
  Report Type: Spontaneous
  Country: JP (occurrence: JP)
  Receive Date: 20150527
  Receipt Date: 20150726
  Transmission Date: 20151125
  Serious: Yes (Life-Threatening, Hospitalization, Disabling)
  Sender: FDA-Public Use
  Company Number: JP-BRACCO-009134

PATIENT
  Age: 79 Year
  Sex: Male
  Weight: 54 kg

DRUGS (12)
  1. IOPAMIRON [Suspect]
     Active Substance: IOPAMIDOL
     Indication: COMPUTERISED TOMOGRAM
     Route: 042
     Dates: start: 20150314, end: 20150314
  2. BROTIZOLAM [Concomitant]
     Active Substance: BROTIZOLAM
  3. MAGLAX [Concomitant]
     Active Substance: MAGNESIUM OXIDE
  4. PANALDINE [Concomitant]
     Active Substance: TICLOPIDINE HYDROCHLORIDE
     Dates: start: 20150208
  5. FRANDOL [Concomitant]
     Active Substance: ISOSORBIDE DINITRATE
  6. HERBESSER [Concomitant]
     Active Substance: DILTIAZEM HYDROCHLORIDE
  7. AMARYL [Concomitant]
     Active Substance: GLIMEPIRIDE
  8. LIPITOR [Concomitant]
     Active Substance: ATORVASTATIN CALCIUM
  9. MARZULENE S [Concomitant]
     Active Substance: GLUTAMINE\SODIUM GUALENATE
  10. FERROUS SULFATE [Concomitant]
     Active Substance: FERROUS SULFATE\FERROUS SULFATE, DRIED
  11. ARTIST [Concomitant]
     Active Substance: CARVEDILOL
  12. BAYASPIRIN [Concomitant]
     Active Substance: ASPIRIN
     Dates: start: 20150208

REACTIONS (1)
  - Anaphylactic shock [Recovered/Resolved with Sequelae]

NARRATIVE: CASE EVENT DATE: 20150314
